FAERS Safety Report 7145744-6 (Version None)
Quarter: 2010Q4

REPORT INFORMATION
  Report Type: 
  Country: None (occurrence: None)
  Receive Date: 20101208
  Receipt Date: 20100923
  Transmission Date: 20110411
  Serious: No
  Sender: FDA-Public Use
  Company Number: US-ABBOTT-10P-163-0673248-00

PATIENT
  Age: 43 Year
  Sex: Female

DRUGS (9)
  1. E.E.S. [Suspect]
     Indication: PRODUCT USED FOR UNKNOWN INDICATION
  2. VITAMIN B-12 [Concomitant]
     Indication: PRODUCT USED FOR UNKNOWN INDICATION
  3. VITAMIN D [Concomitant]
     Indication: MALNUTRITION
  4. OSCAL 500 PLUS D [Concomitant]
     Indication: PRODUCT USED FOR UNKNOWN INDICATION
  5. SYNTHROID [Concomitant]
     Indication: HYPOTHYROIDISM
  6. ZYRTEC [Concomitant]
     Indication: HYPERSENSITIVITY
  7. DULCOLAX [Concomitant]
     Indication: CONSTIPATION
  8. PRESCRIPTION LAXATIVE [Concomitant]
     Indication: CONSTIPATION
  9. NEXIUM [Concomitant]
     Indication: GASTROOESOPHAGEAL REFLUX DISEASE

REACTIONS (2)
  - ABDOMINAL PAIN UPPER [None]
  - VOMITING [None]
